FAERS Safety Report 23834737 (Version 1)
Quarter: 2024Q2

REPORT INFORMATION
  Report Type: Spontaneous
  Country: US (occurrence: US)
  Receive Date: 20240509
  Receipt Date: 20240509
  Transmission Date: 20240715
  Serious: No
  Sender: FDA-Public Use
  Company Number: US-ABBVIE-5744205

PATIENT
  Age: 23 Year
  Sex: Male
  Weight: 78 kg

DRUGS (4)
  1. HUMIRA [Suspect]
     Active Substance: ADALIMUMAB
     Indication: Hidradenitis
     Dosage: FORM STRENGTH: 40 MG
     Route: 058
     Dates: start: 20231013, end: 20240403
  2. SEROQUEL [Concomitant]
     Active Substance: QUETIAPINE FUMARATE
     Indication: Bipolar II disorder
  3. TESTOSTERONE [Concomitant]
     Active Substance: TESTOSTERONE
     Indication: Hormone replacement therapy
  4. CLONIDINE [Concomitant]
     Active Substance: CLONIDINE
     Indication: Anxiety

REACTIONS (5)
  - Constipation [Recovering/Resolving]
  - Hidradenitis [Unknown]
  - Diarrhoea [Recovered/Resolved]
  - Pyrexia [Recovered/Resolved]
  - Anal incontinence [Recovered/Resolved]

NARRATIVE: CASE EVENT DATE: 20240301
